FAERS Safety Report 5398853-6 (Version None)
Quarter: 2007Q3

REPORT INFORMATION
  Report Type: 
  Country: None (occurrence: None)
  Receive Date: 20070727
  Receipt Date: 20070719
  Transmission Date: 20080115
  Serious: Yes (Other)
  Sender: FDA-Public Use
  Company Number: PHFR2007GB01920

PATIENT
  Sex: Female

DRUGS (5)
  1. TEGRETOL [Suspect]
     Indication: TEMPORAL LOBE EPILEPSY
     Dosage: 400 MG, BID
     Route: 048
     Dates: start: 20031013
  2. LYRICA [Concomitant]
     Route: 065
  3. TOPIRAMATE [Concomitant]
     Route: 065
  4. CLOBAZAM [Concomitant]
     Dosage: 10 MG, PRN/NOCTE
     Route: 048
  5. PREGABALIN [Concomitant]
     Dosage: 25 MG, BID
     Route: 048
     Dates: start: 20060713

REACTIONS (6)
  - BALANCE DISORDER [None]
  - MOTOR NEURONE DISEASE [None]
  - MUSCULAR WEAKNESS [None]
  - NEURALGIA [None]
  - PAIN [None]
  - PAIN IN EXTREMITY [None]
